FAERS Safety Report 21641871 (Version 3)
Quarter: 2022Q4

REPORT INFORMATION
  Report Type: Spontaneous
  Country: US (occurrence: US)
  Receive Date: 20221125
  Receipt Date: 20221229
  Transmission Date: 20230112
  Serious: No
  Sender: FDA-Public Use
  Company Number: US-UNITED THERAPEUTICS-UNT-2022-028602

PATIENT
  Sex: Female

DRUGS (2)
  1. REMODULIN [Suspect]
     Active Substance: TREPROSTINIL
     Indication: Pulmonary arterial hypertension
     Dosage: UNK, CONTINUING
     Route: 058
     Dates: start: 202106
  2. REMODULIN [Suspect]
     Active Substance: TREPROSTINIL
     Dosage: 0.0202 ?G/KG, CONTINUING
     Route: 058

REACTIONS (9)
  - Device leakage [Unknown]
  - Device maintenance issue [Unknown]
  - Infusion site nodule [Not Recovered/Not Resolved]
  - Infusion site discharge [Recovered/Resolved]
  - Infusion site warmth [Recovered/Resolved]
  - Infusion site pain [Recovered/Resolved]
  - Infusion site swelling [Recovered/Resolved]
  - Infusion site discolouration [Not Recovered/Not Resolved]
  - Infusion site induration [Recovered/Resolved]
